FAERS Safety Report 16166360 (Version 1)
Quarter: 2019Q2

REPORT INFORMATION
  Report Type: Spontaneous
  Country: FR (occurrence: FR)
  Receive Date: 20190406
  Receipt Date: 20190406
  Transmission Date: 20190711
  Serious: Yes (Death)
  Sender: FDA-Public Use
  Company Number: PHHY2019FR078125

PATIENT
  Age: 86 Year
  Sex: Male

DRUGS (11)
  1. CORDARONE [Concomitant]
     Active Substance: AMIODARONE HYDROCHLORIDE
     Indication: PRODUCT USED FOR UNKNOWN INDICATION
     Dosage: 200 MG, QD
     Route: 065
  2. ASPIRIN. [Concomitant]
     Active Substance: ASPIRIN
     Indication: PRODUCT USED FOR UNKNOWN INDICATION
     Dosage: UNK
     Route: 065
  3. TAHOR [Concomitant]
     Active Substance: ATORVASTATIN CALCIUM
     Indication: PRODUCT USED FOR UNKNOWN INDICATION
     Dosage: 10 MG, UNK
     Route: 065
  4. EZETROL [Concomitant]
     Active Substance: EZETIMIBE
     Indication: PRODUCT USED FOR UNKNOWN INDICATION
     Dosage: 10 MG, UNK
     Route: 065
  5. LEVOTHYROX [Concomitant]
     Active Substance: LEVOTHYROXINE
     Indication: PRODUCT USED FOR UNKNOWN INDICATION
     Dosage: 50 MG, UNK
     Route: 065
  6. ENTRESTO [Suspect]
     Active Substance: SACUBITRIL\VALSARTAN
     Indication: ISCHAEMIC CARDIOMYOPATHY
     Dosage: 2 DF, QD
     Route: 065
     Dates: end: 20190205
  7. RAMIPRIL. [Suspect]
     Active Substance: RAMIPRIL
     Dosage: 10 MG, QD
     Route: 065
  8. BISOCE [Concomitant]
     Active Substance: BISOPROLOL
     Indication: PRODUCT USED FOR UNKNOWN INDICATION
     Dosage: UNK
     Route: 065
  9. LASILIX [Concomitant]
     Active Substance: FUROSEMIDE
     Indication: PRODUCT USED FOR UNKNOWN INDICATION
     Dosage: 40 MG, UNK
     Route: 065
  10. RAMIPRIL. [Suspect]
     Active Substance: RAMIPRIL
     Indication: PRODUCT USED FOR UNKNOWN INDICATION
     Dosage: 5 MG, UNK
     Route: 065
     Dates: start: 20190207
  11. PREVISCAN [Concomitant]
     Indication: PRODUCT USED FOR UNKNOWN INDICATION
     Dosage: UNK
     Route: 065

REACTIONS (7)
  - Cardiac failure [Fatal]
  - Agitation [Unknown]
  - Nightmare [Unknown]
  - Confusional state [Unknown]
  - Hallucination, visual [Unknown]
  - Product use in unapproved indication [Unknown]
  - Diarrhoea [Recovered/Resolved]
